FAERS Safety Report 10390110 (Version 4)
Quarter: 2021Q2

REPORT INFORMATION
  Report Type: Spontaneous
  Country: CA (occurrence: CA)
  Receive Date: 20140818
  Receipt Date: 20210422
  Transmission Date: 20210716
  Serious: Yes (Hospitalization)
  Sender: FDA-Public Use
  Company Number: CA-PFIZER INC-2014224340

PATIENT
  Age: 75 Year
  Sex: Female

DRUGS (8)
  1. LORAZEPAM. [Suspect]
     Active Substance: LORAZEPAM
     Dosage: 1 MG, DAILY
  2. GABAPENTIN. [Suspect]
     Active Substance: GABAPENTIN
     Indication: FIBROMYALGIA
     Dosage: 1800 MG, ONCE DAILY
  3. GABAPENTIN. [Suspect]
     Active Substance: GABAPENTIN
     Dosage: 600 MG, 1X/DAY(AT BEDTIME)
  4. GABAPENTIN. [Suspect]
     Active Substance: GABAPENTIN
     Dosage: 1400 MG, ONCE DAILY
  5. GABAPENTIN. [Suspect]
     Active Substance: GABAPENTIN
     Dosage: 400 MG, UNK (GIVEN IMMEDIATELY)
  6. GABAPENTIN. [Suspect]
     Active Substance: GABAPENTIN
     Indication: NEURALGIA
     Dosage: 600 MG, ONCE DAILY (RE?INITIATED AT BEDTIME)
  7. LORAZEPAM. [Suspect]
     Active Substance: LORAZEPAM
     Indication: DEPRESSION
     Dosage: 3 MG, ONCE DAILY
  8. SERTRALINE HCL [Suspect]
     Active Substance: SERTRALINE HYDROCHLORIDE
     Indication: DEPRESSION
     Dosage: 300 MG, ONCE DAILY

REACTIONS (16)
  - Hepatic enzyme increased [Unknown]
  - Agitation [Recovered/Resolved]
  - Decreased appetite [Recovering/Resolving]
  - Anxiety [Recovering/Resolving]
  - Fall [Unknown]
  - Abdominal pain [Recovered/Resolved]
  - Chills [Recovered/Resolved]
  - Hyperhidrosis [Recovered/Resolved]
  - Cold sweat [Recovered/Resolved]
  - Insomnia [Not Recovered/Not Resolved]
  - Hypokalaemia [Unknown]
  - Asthenia [Unknown]
  - Hypertension [Recovered/Resolved]
  - Nausea [Unknown]
  - Withdrawal syndrome [Recovered/Resolved]
  - Headache [Unknown]
